FAERS Safety Report 5156359-3 (Version None)
Quarter: 2006Q4

REPORT INFORMATION
  Report Type: 
  Country: None (occurrence: None)
  Receive Date: 20061122
  Receipt Date: 20061110
  Transmission Date: 20070319
  Serious: Yes (Hospitalization)
  Sender: FDA-Public Use
  Company Number: JP-SANOFI-SYNTHELABO-A01200609602

PATIENT
  Age: 80 Year
  Sex: Male

DRUGS (1)
  1. MYSLEE [Suspect]
     Indication: DRUG USE FOR UNKNOWN INDICATION
     Dosage: 5 MG
     Route: 048

REACTIONS (2)
  - ERYTHEMA [None]
  - SKIN EXFOLIATION [None]
